FAERS Safety Report 14573989 (Version 1)
Quarter: 2018Q1

REPORT INFORMATION
  Report Type: Report from Study
  Country: KR (occurrence: KR)
  Receive Date: 20180226
  Receipt Date: 20180226
  Transmission Date: 20180509
  Serious: Yes (Death)
  Sender: FDA-Public Use
  Company Number: KR-PFIZER INC-2018077300

PATIENT

DRUGS (2)
  1. CISPLATIN. [Suspect]
     Active Substance: CISPLATIN
     Indication: OESOPHAGEAL CANCER METASTATIC
     Dosage: 30 MG/M2, CYCLIC (OVER 60 MINUTES, ON DAYS 1 AND 8 OF EACH 21-DAY TREATMENT CYCLE)
     Route: 042
  2. IRINOTECAN HCL [Suspect]
     Active Substance: IRINOTECAN HYDROCHLORIDE
     Indication: OESOPHAGEAL CANCER METASTATIC
     Dosage: 65 MG/M2, CYCLIC (OVER 3 HOURS,ON DAYS 1 AND 8 OF EACH 21-DAY TREATMENT CYCLE)
     Route: 042

REACTIONS (2)
  - Pneumonia [Fatal]
  - Septic shock [Fatal]
